FAERS Safety Report 25325045 (Version 1)
Quarter: 2025Q2

REPORT INFORMATION
  Report Type: Spontaneous
  Country: US (occurrence: US)
  Receive Date: 20250516
  Receipt Date: 20250516
  Transmission Date: 20250716
  Serious: Yes (Other)
  Sender: JOHNSON AND JOHNSON
  Company Number: US-JNJFOC-20250519879

PATIENT
  Age: 70 Year
  Sex: Male

DRUGS (1)
  1. CARVYKTI [Suspect]
     Active Substance: CILTACABTAGENE AUTOLEUCEL
     Indication: Plasma cell myeloma
     Route: 065

REACTIONS (9)
  - Immune effector cell-associated HLH-like syndrome [Recovered/Resolved]
  - Cytokine release syndrome [Recovered/Resolved]
  - Neutropenia [Unknown]
  - Thrombocytopenia [Unknown]
  - Parkinsonism [Recovered/Resolved]
  - Anaemia [Unknown]
  - Hypofibrinogenaemia [Unknown]
  - Hyperferritinaemia [Unknown]
  - Hypertransaminasaemia [Unknown]
